FAERS Safety Report 4629196-3 (Version None)
Quarter: 2005Q2

REPORT INFORMATION
  Report Type: 
  Country: None (occurrence: None)
  Receive Date: 20050404
  Receipt Date: 20050404
  Transmission Date: 20051028
  Serious: Yes (Hospitalization)
  Sender: FDA-Public Use
  Company Number: None

PATIENT
  Age: 43 Year
  Sex: Male
  Weight: 63.5036 kg

DRUGS (1)
  1. FLUPHENAZINE DECANOATE [Suspect]
     Dosage: 40 MG Q 2 WKS IM
     Route: 030

REACTIONS (1)
  - DRUG LEVEL DECREASED [None]
